FAERS Safety Report 18072171 (Version 1)
Quarter: 2020Q3

REPORT INFORMATION
  Report Type: Spontaneous
  Country: US (occurrence: US)
  Receive Date: 20200725
  Receipt Date: 20200725
  Transmission Date: 20201103
  Serious: Yes (Life-Threatening, Disabling, Other)
  Sender: FDA-Public Use
  Company Number: None

PATIENT
  Age: 28 Year
  Sex: Female
  Weight: 65.25 kg

DRUGS (1)
  1. KLONOPIN [Suspect]
     Active Substance: CLONAZEPAM
     Indication: INSOMNIA
     Dosage: ?          QUANTITY:2 TABLET(S);?
     Route: 048

REACTIONS (12)
  - Depression [None]
  - Asthenia [None]
  - Hyperacusis [None]
  - Suicidal ideation [None]
  - Loss of personal independence in daily activities [None]
  - Vision blurred [None]
  - Migraine [None]
  - Amnesia [None]
  - Taste disorder [None]
  - Anxiety [None]
  - Muscle spasms [None]
  - Condition aggravated [None]

NARRATIVE: CASE EVENT DATE: 20200320
